FAERS Safety Report 19150973 (Version 1)
Quarter: 2021Q2

REPORT INFORMATION
  Report Type: Spontaneous
  Country: US (occurrence: US)
  Receive Date: 20210419
  Receipt Date: 20210419
  Transmission Date: 20210717
  Serious: No
  Sender: FDA-Public Use
  Company Number: US-MTPC-MTDA2021-0009816

PATIENT
  Sex: Male

DRUGS (1)
  1. RADICAVA [Suspect]
     Active Substance: EDARAVONE
     Indication: AMYOTROPHIC LATERAL SCLEROSIS
     Dosage: 60 MILLIGRAM OVER A 60 MINUTE PERIOD, QD FOR 14 DAYS FOLLOWED BY A 14?DAY DRUG?FREE PERIOD
     Route: 042
     Dates: start: 20210412

REACTIONS (3)
  - Catheter site related reaction [Recovered/Resolved]
  - Fatigue [Recovered/Resolved]
  - Insomnia [Recovered/Resolved]
